FAERS Safety Report 21308989 (Version 2)
Quarter: 2022Q3

REPORT INFORMATION
  Report Type: Spontaneous
  Country: US (occurrence: US)
  Receive Date: 20220908
  Receipt Date: 20220915
  Transmission Date: 20221027
  Serious: Yes (Hospitalization)
  Sender: FDA-Public Use
  Company Number: US-BRISTOL-MYERS SQUIBB COMPANY-2022-101191

PATIENT
  Age: 70 Year
  Sex: Male

DRUGS (1)
  1. REVLIMID [Suspect]
     Active Substance: LENALIDOMIDE
     Indication: Product used for unknown indication
     Dosage: FREQUENCY:OTHER
     Route: 048
     Dates: start: 202112, end: 202205

REACTIONS (3)
  - Product dose omission issue [Unknown]
  - Liver disorder [Unknown]
  - Rash [Unknown]

NARRATIVE: CASE EVENT DATE: 20220518
